FAERS Safety Report 6309266-4 (Version None)
Quarter: 2009Q3

REPORT INFORMATION
  Report Type: 
  Country: None (occurrence: None)
  Receive Date: 20090814
  Receipt Date: 20090804
  Transmission Date: 20100115
  Serious: Yes (Death, Hospitalization)
  Sender: FDA-Public Use
  Company Number: DE-PFIZER INC-2009250302

PATIENT
  Age: 72 Year

DRUGS (5)
  1. ZYVOXID [Suspect]
     Indication: STAPHYLOCOCCAL INFECTION
     Dosage: UNK
     Route: 042
     Dates: start: 20090601, end: 20090701
  2. ZYVOXID [Suspect]
     Indication: LUNG ABSCESS
  3. ZYVOXID [Suspect]
     Dosage: UNK
     Route: 048
     Dates: start: 20090701
  4. ZYVOXID [Suspect]
  5. ALL OTHER THERAPEUTIC PRODUCTS [Concomitant]

REACTIONS (3)
  - METABOLIC ACIDOSIS [None]
  - SHOCK [None]
  - TONGUE DISCOLOURATION [None]
